FAERS Safety Report 8259082-1 (Version None)
Quarter: 2012Q2

REPORT INFORMATION
  Report Type: 
  Country: None (occurrence: None)
  Receive Date: 20120404
  Receipt Date: 20120329
  Transmission Date: 20120825
  Serious: Yes (Hospitalization, Other)
  Sender: FDA-Public Use
  Company Number: US-PFIZER INC-2010116908

PATIENT
  Sex: Female

DRUGS (20)
  1. MULTI-VITAMINS [Concomitant]
     Dosage: 10 ML, UNK
     Dates: start: 20080812
  2. DILANTIN [Suspect]
     Dosage: 100 MG, 3X/DAY
     Route: 048
     Dates: start: 20080812
  3. SUCCINYLCHOLINE CHLORIDE [Concomitant]
     Dosage: UNK
     Dates: start: 20080811
  4. CLONIDINE [Concomitant]
     Dosage: UNK
     Dates: start: 20080818
  5. UNASYN [Concomitant]
     Indication: PNEUMONIA ASPIRATION
     Dosage: UNK
     Route: 042
     Dates: start: 20080811, end: 20080817
  6. ESCITALOPRAM [Concomitant]
     Dosage: UNK
     Dates: start: 20080818
  7. INSULIN HUMAN [Concomitant]
     Dosage: UNK
     Dates: start: 20080811
  8. POTASSIUM CHLORIDE [Concomitant]
     Dosage: UNK
     Route: 042
     Dates: start: 20080812
  9. MORPHINE SULFATE [Concomitant]
     Dosage: UNK
     Dates: start: 20080812
  10. ACETAMINOPHEN W/ CODEINE [Concomitant]
     Dosage: UNK
     Dates: start: 20080818
  11. LORAZEPAM [Concomitant]
     Dosage: UNK
     Dates: start: 20080818
  12. DILANTIN [Suspect]
     Indication: CONVULSION PROPHYLAXIS
     Dosage: UNK
     Dates: start: 20080811, end: 20080825
  13. FOLIC ACID [Concomitant]
     Dosage: UNK
     Dates: start: 20080812
  14. DILANTIN [Suspect]
     Dosage: 300 MG DAILY
     Dates: start: 20080818
  15. FOSPHENYTOIN [Concomitant]
     Dosage: 1000MG, UNK
     Route: 042
     Dates: start: 20080811
  16. QUETIAPINE [Concomitant]
     Dosage: UNK
     Dates: start: 20080818, end: 20080826
  17. KETOROLAC TROMETHAMINE [Concomitant]
     Dosage: UNK
     Dates: start: 20080818
  18. ESOMEPRAZOLE [Concomitant]
     Dosage: UNK
     Dates: start: 20080812
  19. ASCORBIC ACID [Concomitant]
     Dosage: UNK
     Dates: start: 20080818
  20. DALTEPARIN SODIUM [Concomitant]
     Dosage: UNK
     Dates: start: 20080818

REACTIONS (1)
  - STEVENS-JOHNSON SYNDROME [None]
